FAERS Safety Report 25752276 (Version 1)
Quarter: 2025Q3

REPORT INFORMATION
  Report Type: Report from Study
  Country: UY (occurrence: UY)
  Receive Date: 20250902
  Receipt Date: 20250902
  Transmission Date: 20251020
  Serious: Yes (Other)
  Sender: ABBVIE
  Company Number: UY-ABBVIE-6440083

PATIENT
  Age: 15 Year
  Sex: Female

DRUGS (1)
  1. RINVOQ [Suspect]
     Active Substance: UPADACITINIB
     Indication: Dermatitis atopic
     Dosage: RINVOQ 30MG X 30 TABLETS
     Route: 048
     Dates: start: 20230113, end: 202508

REACTIONS (4)
  - Intentional self-injury [Unknown]
  - Dermatitis atopic [Recovering/Resolving]
  - Rhinitis allergic [Unknown]
  - Depression [Unknown]

NARRATIVE: CASE EVENT DATE: 20250101
